FAERS Safety Report 9478225 (Version 1)
Quarter: 2013Q3

REPORT INFORMATION
  Report Type: Spontaneous
  Country: CN (occurrence: CN)
  Receive Date: 20130827
  Receipt Date: 20130827
  Transmission Date: 20140515
  Serious: Yes (Other)
  Sender: FDA-Public Use
  Company Number: CN-PFIZER INC-2013246354

PATIENT
  Age: 59 Year
  Sex: Male

DRUGS (1)
  1. LIPITOR [Suspect]
     Indication: HYPERLIPIDAEMIA
     Dosage: 20.0 MG, ONCE DAILY
     Route: 048
     Dates: start: 20110615, end: 20120115

REACTIONS (2)
  - Rhabdomyolysis [Recovering/Resolving]
  - Asthenia [Recovering/Resolving]
